FAERS Safety Report 18027640 (Version 1)
Quarter: 2020Q3

REPORT INFORMATION
  Report Type: Spontaneous
  Country: US (occurrence: US)
  Receive Date: 20200715
  Receipt Date: 20200715
  Transmission Date: 20201103
  Serious: Yes (Other)
  Sender: FDA-Public Use
  Company Number: US-GLAXOSMITHKLINE-US2020AMR128682

PATIENT
  Sex: Female

DRUGS (1)
  1. NUCALA [Suspect]
     Active Substance: MEPOLIZUMAB
     Indication: ASTHMA
     Dosage: 100 MG
     Route: 065
     Dates: start: 2017

REACTIONS (4)
  - Complication associated with device [Unknown]
  - Immune system disorder [Unknown]
  - Rheumatoid arthritis [Unknown]
  - Cardiac disorder [Unknown]
